FAERS Safety Report 13139699 (Version 2)
Quarter: 2017Q1

REPORT INFORMATION
  Report Type: Spontaneous
  Country: JP (occurrence: JP)
  Receive Date: 20170123
  Receipt Date: 20170217
  Transmission Date: 20170428
  Serious: Yes (Death, Other)
  Sender: FDA-Public Use
  Company Number: JP-ASTRAZENECA-2017SE07253

PATIENT
  Age: 80 Year
  Sex: Male
  Weight: 68 kg

DRUGS (8)
  1. FUROSEMIDE. [Concomitant]
     Active Substance: FUROSEMIDE
     Route: 048
  2. SENNOSIDE [Concomitant]
     Active Substance: SENNOSIDES
  3. MAGNESIUM OXIDE. [Concomitant]
     Active Substance: MAGNESIUM OXIDE
     Route: 048
  4. DAIKENCHUTO [Concomitant]
     Active Substance: HERBALS
  5. QUETIAPINE. [Suspect]
     Active Substance: QUETIAPINE
     Indication: PRODUCT USED FOR UNKNOWN INDICATION
     Dosage: 10 MG DAILY, GENERIC, NONAZ DRUG
     Route: 048
  6. NITRAZEPAM [Concomitant]
     Active Substance: NITRAZEPAM
     Route: 048
  7. DIPYRIDAMOLE. [Concomitant]
     Active Substance: DIPYRIDAMOLE
     Route: 048
  8. RISPERIDONE. [Suspect]
     Active Substance: RISPERIDONE
     Indication: PRODUCT USED FOR UNKNOWN INDICATION
     Route: 048

REACTIONS (3)
  - Volvulus [Fatal]
  - Ileus [Unknown]
  - Megacolon [Unknown]
